FAERS Safety Report 12241707 (Version 1)
Quarter: 2016Q2

REPORT INFORMATION
  Report Type: Spontaneous
  Country: US (occurrence: US)
  Receive Date: 20160406
  Receipt Date: 20160406
  Transmission Date: 20160815
  Serious: Yes (Other)
  Sender: FDA-Public Use
  Company Number: US-ACTAVIS-2016-07267

PATIENT
  Age: 52 Year
  Sex: Female
  Weight: 123 kg

DRUGS (2)
  1. PREDNISOLONE (WATSON LABORATORIES) [Suspect]
     Active Substance: PREDNISOLONE
     Indication: PALINDROMIC RHEUMATISM
     Dosage: 5 MG, DAILY
  2. HYDROCODONE-ACETAMINOPHEN (WATSON LABORATORIES) [Suspect]
     Active Substance: ACETAMINOPHEN\HYDROCODONE
     Indication: ANALGESIC THERAPY
     Dosage: 3 TO 4 TABLETS DAILY
     Route: 065

REACTIONS (1)
  - Catheter site infection [Unknown]
